FAERS Safety Report 12054390 (Version 1)
Quarter: 2016Q1

REPORT INFORMATION
  Report Type: Spontaneous
  Country: FR (occurrence: FR)
  Receive Date: 20160209
  Receipt Date: 20160209
  Transmission Date: 20160526
  Serious: Yes (Hospitalization)
  Sender: FDA-Public Use
  Company Number: FR-SA-2016SA019749

PATIENT
  Age: 64 Year
  Sex: Male

DRUGS (5)
  1. TAXOTERE [Suspect]
     Active Substance: DOCETAXEL
     Dosage: ROUTE:INTRAVENOUS (INFUSION)
     Dates: start: 20151106, end: 20151106
  2. KARDEGIC [Concomitant]
     Active Substance: ASPIRIN LYSINE
     Dosage: STRENGTH: 75MG, POWDER FOR ORAL SOLTUION IN DOSE SACHET
     Route: 048
  3. XATRAL [Concomitant]
     Active Substance: ALFUZOSIN
     Dosage: XATRAL LP 10 MG, PROLONGED RELEASED TABLET
     Route: 048
  4. SKENAN [Concomitant]
     Active Substance: MORPHINE SULFATE
     Dosage: SKENAN L.P. 30 MG PROLONGED-RELEASE MICRO GRANULES IN CAPSULE?DOSAGE: 60 MG (30 MG, 2 IN 1 HOUR
     Dates: start: 201510
  5. EUPANTOL [Concomitant]
     Active Substance: PANTOPRAZOLE SODIUM
     Dosage: EUPANTOL 40 MG GASTRORESISTANT TABLET
     Route: 048
     Dates: end: 20151111

REACTIONS (1)
  - Pancreatitis acute [Recovered/Resolved]

NARRATIVE: CASE EVENT DATE: 20151110
